FAERS Safety Report 5786641-8 (Version None)
Quarter: 2008Q2

REPORT INFORMATION
  Report Type: 
  Country: None (occurrence: None)
  Receive Date: 20080624
  Receipt Date: 20080617
  Transmission Date: 20081010
  Serious: Yes (Hospitalization)
  Sender: FDA-Public Use
  Company Number: US-GENENTECH-262147

PATIENT
  Sex: Male
  Weight: 112 kg

DRUGS (31)
  1. BLINDED ANTI-CD40 [Suspect]
     Indication: DIFFUSE LARGE B-CELL LYMPHOMA
     Dosage: 200 MG, SINGLE
     Route: 042
     Dates: start: 20080509, end: 20080509
  2. BLINDED PLACEBO [Suspect]
     Indication: DIFFUSE LARGE B-CELL LYMPHOMA
     Dosage: 200 MG, SINGLE
     Route: 042
     Dates: start: 20080509, end: 20080509
  3. BLINDED ANTI-CD40 [Suspect]
     Dosage: 400 MG, SINGLE
     Route: 042
     Dates: start: 20080512, end: 20080512
  4. BLINDED PLACEBO [Suspect]
     Dosage: 400 MG, SINGLE
     Route: 042
     Dates: start: 20080512, end: 20080512
  5. BLINDED ANTI-CD40 [Suspect]
     Dosage: 800 MG, SINGLE
     Route: 042
     Dates: start: 20080516, end: 20080516
  6. BLINDED PLACEBO [Suspect]
     Dosage: 800 MG, SINGLE
     Route: 042
     Dates: start: 20080516, end: 20080516
  7. RITUXAN [Suspect]
     Indication: DIFFUSE LARGE B-CELL LYMPHOMA
     Dosage: 800 MG, SINGLE
     Route: 042
     Dates: start: 20080508
  8. ETOPOSIDE [Suspect]
     Indication: DIFFUSE LARGE B-CELL LYMPHOMA
     Dosage: 210 MG, Q3W
     Route: 042
     Dates: start: 20080510
  9. CARBOPLATIN [Suspect]
     Indication: DIFFUSE LARGE B-CELL LYMPHOMA
     Dosage: 545 MG, Q3W
     Route: 042
     Dates: start: 20080511
  10. IFOSFAMIDE [Suspect]
     Indication: DIFFUSE LARGE B-CELL LYMPHOMA
     Dosage: 8025 MG, Q3W
     Route: 042
     Dates: start: 20080511
  11. ATENOLOL [Concomitant]
     Indication: DRUG USE FOR UNKNOWN INDICATION
  12. DIOVAN [Concomitant]
     Indication: DRUG USE FOR UNKNOWN INDICATION
  13. PAROXETINE HCL [Concomitant]
     Indication: DRUG USE FOR UNKNOWN INDICATION
  14. ACETAMINOPHEN AND HYDROCODONE BITARTRATE [Concomitant]
     Indication: DRUG USE FOR UNKNOWN INDICATION
  15. HEPARIN [Concomitant]
     Indication: DRUG USE FOR UNKNOWN INDICATION
     Dates: start: 20080511, end: 20080516
  16. ESOMEPRAZOLE MAGNESIUM [Concomitant]
     Indication: DRUG USE FOR UNKNOWN INDICATION
     Dates: start: 20080512
  17. FILGRASTIM [Concomitant]
     Indication: DRUG USE FOR UNKNOWN INDICATION
     Dates: start: 20080514
  18. ACETAMINOPHEN [Concomitant]
     Indication: DRUG USE FOR UNKNOWN INDICATION
     Dates: start: 20080512, end: 20080516
  19. MORPHINE [Concomitant]
     Indication: DRUG USE FOR UNKNOWN INDICATION
     Dates: start: 20080513, end: 20080513
  20. DEXAMETHASONE [Concomitant]
     Indication: DRUG USE FOR UNKNOWN INDICATION
     Dates: start: 20080516, end: 20080516
  21. DIPHENHYDRAMINE HCL [Concomitant]
     Indication: DRUG USE FOR UNKNOWN INDICATION
     Dates: start: 20080516, end: 20080516
  22. SODIUM BICARBONATE [Concomitant]
     Indication: DRUG USE FOR UNKNOWN INDICATION
     Dates: start: 20080516
  23. PAIN MEDICATION (NAME UNKNOWN) [Concomitant]
     Indication: TOOTH IMPACTED
  24. CLARITIN [Concomitant]
     Indication: DRUG USE FOR UNKNOWN INDICATION
  25. ZYRTEC [Concomitant]
     Indication: DRUG USE FOR UNKNOWN INDICATION
  26. MAGIC MOUTHWASH (BENADRYL, CARAFATE, XYLOCAIN [Concomitant]
     Indication: DRUG USE FOR UNKNOWN INDICATION
  27. DIFLUCAN [Concomitant]
     Indication: DRUG USE FOR UNKNOWN INDICATION
  28. ANTIHISTAMINE NOS [Concomitant]
     Indication: DRUG USE FOR UNKNOWN INDICATION
  29. GEMCITABINE [Concomitant]
     Indication: DISEASE PROGRESSION
  30. OXALIPLATIN [Concomitant]
     Indication: DRUG USE FOR UNKNOWN INDICATION
  31. PERCOCET [Concomitant]
     Indication: ABDOMINAL PAIN

REACTIONS (1)
  - FEBRILE NEUTROPENIA [None]
